FAERS Safety Report 21015828 (Version 1)
Quarter: 2022Q2

REPORT INFORMATION
  Report Type: Other
  Country: US (occurrence: US)
  Receive Date: 20220628
  Receipt Date: 20220628
  Transmission Date: 20220720
  Serious: Yes (Hospitalization)
  Sender: FDA-Public Use
  Company Number: US-HLS-202200645

PATIENT
  Age: 61 Year
  Sex: Female

DRUGS (3)
  1. CLOZAPINE [Suspect]
     Active Substance: CLOZAPINE
     Indication: Product used for unknown indication
     Dosage: 100 MG EACH MORNING AND 600 MG AT BEDTIME
     Route: 048
  2. MIRTAZAPINE [Concomitant]
     Active Substance: MIRTAZAPINE
     Indication: Product used for unknown indication
     Dosage: AT BEDTIME
     Route: 065
  3. CLONAZEPAM [Concomitant]
     Active Substance: CLONAZEPAM
     Indication: Product used for unknown indication
     Route: 065

REACTIONS (9)
  - Aspartate aminotransferase increased [Unknown]
  - Confusional state [Recovered/Resolved]
  - Leukocytosis [Unknown]
  - Pyrexia [Unknown]
  - Somnolence [Recovered/Resolved]
  - Pneumonia [Unknown]
  - Sepsis [Unknown]
  - Cellulitis [Unknown]
  - Urinary tract infection [Unknown]
